FAERS Safety Report 8244742-9 (Version None)
Quarter: 2012Q1

REPORT INFORMATION
  Report Type: 
  Country: None (occurrence: None)
  Receive Date: 20120329
  Receipt Date: 20110414
  Transmission Date: 20120608
  Serious: No
  Sender: FDA-Public Use
  Company Number: US-MYLANLABS-2011S1005288

PATIENT
  Age: 39 Year
  Sex: Male
  Weight: 90.72 kg

DRUGS (5)
  1. FENTANYL-100 [Suspect]
     Indication: PAIN
     Dosage: Q72 H TO Q48H
     Route: 062
     Dates: start: 20100101
  2. SIMVASTATIN [Concomitant]
  3. DRUG USED IN DIABETES [Concomitant]
  4. LISINOPRIL [Concomitant]
  5. ANTIHYPERTENSIVES [Concomitant]

REACTIONS (3)
  - PAIN [None]
  - DRUG WITHDRAWAL SYNDROME [None]
  - DRUG EFFECT DECREASED [None]
